FAERS Safety Report 19100505 (Version 10)
Quarter: 2022Q1

REPORT INFORMATION
  Report Type: Spontaneous
  Country: GB (occurrence: GB)
  Receive Date: 20210407
  Receipt Date: 20220330
  Transmission Date: 20220423
  Serious: Yes (Life-Threatening, Hospitalization, Congenital Anomaly, Other)
  Sender: FDA-Public Use
  Company Number: GB-MHRA-ADR 22725308

PATIENT
  Age: 1 Day
  Sex: Female
  Weight: 2.55 kg

DRUGS (57)
  1. CODEINE [Suspect]
     Active Substance: CODEINE
     Indication: Pelvic pain
     Dosage: UNK, TABLET
     Route: 064
  2. CODEINE [Suspect]
     Active Substance: CODEINE
     Indication: Back disorder
     Dosage: MATERNAL DOSE: 4 OT, QD
     Route: 064
  3. CODEINE [Suspect]
     Active Substance: CODEINE
     Indication: Foetal exposure during pregnancy
     Dosage: UNK
     Route: 065
  4. CODEINE [Suspect]
     Active Substance: CODEINE
     Dosage: UNK
     Route: 065
  5. COCODAMOL [Suspect]
     Active Substance: ACETAMINOPHEN\CODEINE PHOSPHATE
     Indication: Back disorder
     Dosage: STAGGERED PARACETAMOL OVERDOSE(UNINTENTIONAL) OVER WEEKS AND DAYS PRIOR TO DELIVERY
     Route: 064
  6. COCODAMOL [Suspect]
     Active Substance: ACETAMINOPHEN\CODEINE PHOSPHATE
     Indication: Pelvic pain
     Dosage: UNK, QID
     Route: 064
  7. COCODAMOL [Suspect]
     Active Substance: ACETAMINOPHEN\CODEINE PHOSPHATE
     Indication: Foetal exposure during pregnancy
     Dosage: UNK
     Route: 064
  8. COCODAMOL [Suspect]
     Active Substance: ACETAMINOPHEN\CODEINE PHOSPHATE
     Indication: Foetal exposure during pregnancy
     Dosage: UNK, QID, ABUSE,OVERDOSE
     Route: 064
  9. COCODAMOL [Suspect]
     Active Substance: ACETAMINOPHEN\CODEINE PHOSPHATE
     Dosage: UNK, QD
     Route: 064
  10. COCODAMOL [Suspect]
     Active Substance: ACETAMINOPHEN\CODEINE PHOSPHATE
     Route: 064
  11. COCODAMOL [Suspect]
     Active Substance: ACETAMINOPHEN\CODEINE PHOSPHATE
     Route: 064
  12. COCODAMOL [Suspect]
     Active Substance: ACETAMINOPHEN\CODEINE PHOSPHATE
     Route: 064
  13. ACETAMINOPHEN [Suspect]
     Active Substance: ACETAMINOPHEN
     Indication: Pelvic pain
     Dosage: UNK, UP TO FOUR TIMES A DAY, PERFALGAN
     Route: 064
  14. ACETAMINOPHEN [Suspect]
     Active Substance: ACETAMINOPHEN
     Indication: Foetal exposure during pregnancy
     Dosage: UNK
     Route: 065
  15. ACETAMINOPHEN [Suspect]
     Active Substance: ACETAMINOPHEN
     Indication: Back disorder
     Dosage: UNK
     Route: 065
  16. ACETAMINOPHEN [Suspect]
     Active Substance: ACETAMINOPHEN
     Dosage: UNK, UP TO FOUR TIMES A DAY
     Route: 065
  17. ACETAMINOPHEN [Suspect]
     Active Substance: ACETAMINOPHEN
     Dosage: MATERNAL DOSE: 4 OT, QD
     Route: 064
  18. PERFALGAN [Suspect]
     Active Substance: ACETAMINOPHEN
     Indication: Foetal exposure during pregnancy
     Dosage: UP TO 4 TIMES A DAY
     Route: 064
  19. PERFALGAN [Suspect]
     Active Substance: ACETAMINOPHEN
     Indication: Pelvic pain
     Dosage: MATERNAL DOSE: UNKNOWN (UP TO 4 TIMES A DAY)
     Route: 064
  20. PERFALGAN [Suspect]
     Active Substance: ACETAMINOPHEN
     Indication: Back disorder
     Dosage: MATERNAL DOSE: UNKNOWN
     Route: 064
  21. PERFALGAN [Suspect]
     Active Substance: ACETAMINOPHEN
     Indication: Pyelonephritis
     Dosage: STAGGERED PARACETAMOL OVERDOSE (UNINTENTIONAL) OVER WEEKS AND DAYS PRIOR TO DELIVERY
     Route: 064
  22. PERFALGAN [Suspect]
     Active Substance: ACETAMINOPHEN
     Route: 064
  23. PERFALGAN [Suspect]
     Active Substance: ACETAMINOPHEN
     Dosage: UNK
     Route: 064
  24. PERFALGAN [Suspect]
     Active Substance: ACETAMINOPHEN
     Dosage: UNK
     Route: 064
  25. PERFALGAN [Suspect]
     Active Substance: ACETAMINOPHEN
     Dosage: UNK
     Route: 064
  26. PERFALGAN [Suspect]
     Active Substance: ACETAMINOPHEN
     Dosage: UNK
     Route: 064
  27. PERFALGAN [Suspect]
     Active Substance: ACETAMINOPHEN
     Dosage: UNK
     Route: 064
  28. PERFALGAN [Suspect]
     Active Substance: ACETAMINOPHEN
     Dosage: UNK, 4X/DAY (QID)
     Route: 064
  29. PERFALGAN [Suspect]
     Active Substance: ACETAMINOPHEN
     Route: 064
  30. PERFALGAN [Suspect]
     Active Substance: ACETAMINOPHEN
     Route: 064
  31. PERFALGAN [Suspect]
     Active Substance: ACETAMINOPHEN
     Route: 064
  32. PERFALGAN [Suspect]
     Active Substance: ACETAMINOPHEN
     Dosage: MATERNAL DOSE: UNKNOWN (UP TO 4 TIMES A DAY)
     Route: 064
  33. PERFALGAN [Suspect]
     Active Substance: ACETAMINOPHEN
     Route: 064
  34. PERFALGAN [Suspect]
     Active Substance: ACETAMINOPHEN
     Dosage: MATERNAL DOSE: UNKNOWN (UP TO 4 TIMES A DAY)
     Route: 064
  35. CEPHRADINE [Concomitant]
     Active Substance: CEPHRADINE
     Indication: Pyelonephritis
     Dosage: UNK
     Route: 064
  36. CEPHRADINE [Concomitant]
     Active Substance: CEPHRADINE
     Route: 064
  37. CEPHRADINE [Concomitant]
     Active Substance: CEPHRADINE
     Route: 064
  38. CEPHRADINE [Concomitant]
     Active Substance: CEPHRADINE
     Route: 064
  39. CEPHRADINE [Concomitant]
     Active Substance: CEPHRADINE
     Route: 064
  40. ENOXAPARIN [Concomitant]
     Active Substance: ENOXAPARIN
     Indication: Foetal exposure during pregnancy
     Dosage: UNK
     Route: 064
  41. ENOXAPARIN [Concomitant]
     Active Substance: ENOXAPARIN
     Indication: Foetal exposure during pregnancy
     Route: 064
  42. ENOXAPARIN [Concomitant]
     Active Substance: ENOXAPARIN
     Indication: Foetal exposure during pregnancy
     Route: 064
  43. ENOXAPARIN [Concomitant]
     Active Substance: ENOXAPARIN
     Route: 064
  44. ENOXAPARIN [Concomitant]
     Active Substance: ENOXAPARIN
     Route: 064
  45. ENOXAPARIN [Concomitant]
     Active Substance: ENOXAPARIN
     Route: 064
  46. FLUOXETINE [Concomitant]
     Active Substance: FLUOXETINE HYDROCHLORIDE
     Dosage: UNK
     Route: 064
  47. FLUOXETINE [Concomitant]
     Active Substance: FLUOXETINE HYDROCHLORIDE
     Route: 064
  48. FLUOXETINE [Concomitant]
     Active Substance: FLUOXETINE HYDROCHLORIDE
     Indication: Foetal exposure during pregnancy
     Route: 064
  49. FLUOXETINE [Concomitant]
     Active Substance: FLUOXETINE HYDROCHLORIDE
     Route: 064
  50. FLUOXETINE [Concomitant]
     Active Substance: FLUOXETINE HYDROCHLORIDE
     Route: 064
  51. METRONIDAZOLE [Concomitant]
     Active Substance: METRONIDAZOLE
     Indication: Pyelonephritis
     Dosage: UNK
     Route: 064
  52. METRONIDAZOLE [Concomitant]
     Active Substance: METRONIDAZOLE
     Route: 064
  53. METRONIDAZOLE [Concomitant]
     Active Substance: METRONIDAZOLE
     Route: 064
  54. METRONIDAZOLE [Concomitant]
     Active Substance: METRONIDAZOLE
     Route: 064
  55. METRONIDAZOLE [Concomitant]
     Active Substance: METRONIDAZOLE
     Route: 064
  56. METRONIDAZOLE [Concomitant]
     Active Substance: METRONIDAZOLE
     Route: 064
  57. MORPHINE HYDROCHLORIDE [Concomitant]
     Active Substance: MORPHINE HYDROCHLORIDE
     Indication: Product used for unknown indication
     Dosage: UNK
     Route: 064

REACTIONS (31)
  - Developmental delay [Not Recovered/Not Resolved]
  - Aphasia [Unknown]
  - Hepatic function abnormal [Recovered/Resolved]
  - Premature baby [Unknown]
  - Gait inability [Unknown]
  - Tremor [Unknown]
  - Malaise [Unknown]
  - Foetal monitoring abnormal [Unknown]
  - Incubator therapy [Unknown]
  - Heart rate irregular [Unknown]
  - Liver function test abnormal [Recovered/Resolved]
  - Respiratory distress [Recovered/Resolved]
  - Jaundice neonatal [Recovered/Resolved]
  - Foetal arrhythmia [Recovered/Resolved]
  - Hepatotoxicity [Recovered/Resolved]
  - Dependence [Recovered/Resolved]
  - Drug withdrawal syndrome neonatal [Recovered/Resolved]
  - Overdose [Unknown]
  - Foetal exposure during pregnancy [Unknown]
  - Incorrect product administration duration [Unknown]
  - Language disorder [Unknown]
  - Low birth weight baby [Unknown]
  - Dependence [Unknown]
  - Gait inability [Unknown]
  - Jaundice [Recovered/Resolved]
  - Gingival discomfort [Unknown]
  - Drug dependence [Unknown]
  - Malaise [Unknown]
  - Tremor [Unknown]
  - Premature baby [Unknown]
  - Gait inability [Unknown]
